FAERS Safety Report 10022471 (Version 1)
Quarter: 2014Q1

REPORT INFORMATION
  Report Type: Spontaneous
  Country: CZ (occurrence: CZ)
  Receive Date: 20140319
  Receipt Date: 20140319
  Transmission Date: 20141002
  Serious: Yes (Disabling)
  Sender: FDA-Public Use
  Company Number: CZ-009507513-1403CZE008600

PATIENT
  Age: 4 Month
  Sex: Male
  Weight: .58 kg

DRUGS (6)
  1. BETAMETHASONE DIPROPIONATE [Suspect]
     Indication: LUNG DISORDER
     Dosage: TWO DOSES OF 12 MG
     Route: 064
  2. HYDROXYCHLOROQUINE SULFATE [Concomitant]
     Indication: SYSTEMIC LUPUS ERYTHEMATOSUS
     Dosage: UNK
     Route: 064
  3. AZATHIOPRINE [Concomitant]
     Indication: SYSTEMIC LUPUS ERYTHEMATOSUS
     Dosage: UNK
     Route: 064
  4. VALPROIC ACID [Concomitant]
     Indication: EPILEPSY
     Dosage: UNK
     Route: 064
  5. HEPARIN [Concomitant]
     Indication: LUPUS NEPHRITIS
     Dosage: 3800IU ANTI-XA
     Route: 064
  6. ASPIRIN [Concomitant]
     Indication: LUPUS NEPHRITIS
     Dosage: UNK
     Route: 064

REACTIONS (7)
  - Cognitive disorder [Unknown]
  - Motor dysfunction [Unknown]
  - Speech disorder [Unknown]
  - Mental disability [Unknown]
  - Hypertonia [Unknown]
  - Neuromyopathy [Unknown]
  - Hypokinesia [Unknown]
